FAERS Safety Report 12958035 (Version 1)
Quarter: 2016Q4

REPORT INFORMATION
  Report Type: Spontaneous
  Country: US (occurrence: US)
  Receive Date: 20161120
  Receipt Date: 20161120
  Transmission Date: 20170207
  Serious: No
  Sender: FDA-Public Use
  Company Number: US-B.I. PHARMACEUTICALS,INC./RIDGEFIELD-2016-BI-077729

PATIENT
  Age: 68 Year
  Sex: Female

DRUGS (3)
  1. GLIPIZIDE. [Concomitant]
     Active Substance: GLIPIZIDE
     Indication: DIABETES MELLITUS
     Route: 048
     Dates: start: 2015
  2. METFORMIN [Concomitant]
     Active Substance: METFORMIN HYDROCHLORIDE
     Indication: DIABETES MELLITUS
     Route: 048
     Dates: start: 2013
  3. JARDIANCE [Suspect]
     Active Substance: EMPAGLIFLOZIN
     Indication: TYPE 2 DIABETES MELLITUS
     Dosage: ONCE DAILY;  FORM STRENGTH: 10 MG; ? ACTION(S) TAKEN WITH PRODUCT: DRUG WITHDRAWN
     Route: 048
     Dates: start: 20161101, end: 20161108

REACTIONS (4)
  - Cystitis [Not Recovered/Not Resolved]
  - Thirst [Recovered/Resolved]
  - Urinary incontinence [Recovered/Resolved]
  - Polyuria [Recovered/Resolved]

NARRATIVE: CASE EVENT DATE: 20161101
